FAERS Safety Report 5204024-6 (Version None)
Quarter: 2007Q1

REPORT INFORMATION
  Report Type: 
  Country: None (occurrence: None)
  Receive Date: 20070110
  Receipt Date: 20051228
  Transmission Date: 20070707
  Serious: No
  Sender: FDA-Public Use
  Company Number: US-BRISTOL-MYERS SQUIBB COMPANY-13134523

PATIENT
  Age: 17 Year
  Sex: Male

DRUGS (3)
  1. ABILIFY [Suspect]
     Indication: AGGRESSION
     Route: 048
     Dates: start: 20050921, end: 20051114
  2. PROZAC [Concomitant]
     Route: 048
     Dates: start: 20050921
  3. LAMICTAL [Concomitant]
     Route: 048
     Dates: start: 20050921

REACTIONS (1)
  - FALSE POSITIVE LABORATORY RESULT [None]
